FAERS Safety Report 8257982-X (Version None)
Quarter: 2012Q2

REPORT INFORMATION
  Report Type: 
  Country: None (occurrence: None)
  Receive Date: 20120404
  Receipt Date: 20120327
  Transmission Date: 20120825
  Serious: Yes (Hospitalization, Other)
  Sender: FDA-Public Use
  Company Number: US-BAYER-2011-096174

PATIENT
  Age: 36 Year
  Sex: Female
  Weight: 83.9 kg

DRUGS (10)
  1. YASMIN [Suspect]
  2. YASMIN [Suspect]
     Dosage: UNK
     Route: 048
     Dates: start: 20080301, end: 20081101
  3. YAZ [Suspect]
  4. POTASSIUM CHLORIDE [Concomitant]
     Indication: BLOOD POTASSIUM DECREASED
     Dosage: 20 MG, PILLS 10 MG
     Dates: start: 20080101
  5. TANDERA PLUS [Concomitant]
     Dosage: UNK
     Dates: start: 20080630
  6. RE DUALVIT [Concomitant]
     Dosage: UNK
     Dates: start: 20080702
  7. TRAMADOL HCL [Concomitant]
     Dosage: 50 MG, UNK
     Dates: start: 20080919
  8. YAZ [Suspect]
     Dosage: UNK
     Route: 048
     Dates: start: 20080301, end: 20081101
  9. VITAMINS NOS [Concomitant]
  10. HYDROXYZINE [Concomitant]
     Dosage: 50 MG, UNK
     Dates: start: 20080825

REACTIONS (7)
  - EMOTIONAL DISTRESS [None]
  - GALLBLADDER INJURY [None]
  - GALLBLADDER DISORDER [None]
  - PAIN [None]
  - GENERAL PHYSICAL HEALTH DETERIORATION [None]
  - ANXIETY [None]
  - SCAR [None]
